FAERS Safety Report 9248994 (Version 1)
Quarter: 2013Q1

REPORT INFORMATION
  Report Type: Spontaneous
  Country: US (occurrence: None)
  Receive Date: 20130305
  Receipt Date: 20130305
  Transmission Date: 20140127
  Serious: Yes (Hospitalization, Other)
  Sender: FDA-Public Use
  Company Number: 163-21880-12100289

PATIENT
  Age: 64 Year
  Sex: Female

DRUGS (8)
  1. REVLIMID (LENALIDOMIDE) (CAPSULES) [Suspect]
     Indication: PLASMA CELL MYELOMA
     Route: 048
     Dates: start: 20071127, end: 20120924
  2. ASPIRIN(ACETYLSALICYLIC ACID) (UNKNOWN) [Concomitant]
  3. B COMPLEX(BECOSYM FORTE) (UNKNOWN) [Concomitant]
  4. BIOTIN(BIOTIN) (UNKNOWN) [Concomitant]
  5. CALCIUM + VITAMIN D(LEKOVIT CA) (UNKNOWN) [Concomitant]
  6. OMEGA 3(FISH OIL) (UNKNOWN) [Concomitant]
  7. PREVACID(LANSOPRAZOLE) (UNKNOWN) [Concomitant]
  8. ZOMETA(ZOLEDRONIC ACID) (UNKNOWN) [Concomitant]

REACTIONS (2)
  - White blood cell count decreased [None]
  - Colitis ischaemic [None]
